FAERS Safety Report 16174601 (Version 1)
Quarter: 2019Q2

REPORT INFORMATION
  Report Type: Spontaneous
  Country: US (occurrence: US)
  Receive Date: 20190409
  Receipt Date: 20190409
  Transmission Date: 20190711
  Serious: Yes (Death)
  Sender: FDA-Public Use
  Company Number: US-MYLANLABS-2019M1032625

PATIENT
  Age: 77 Year
  Sex: Female

DRUGS (3)
  1. NOREPINEPHRINE. [Suspect]
     Active Substance: NOREPINEPHRINE
     Indication: CARDIAC ARREST
     Dosage: ROUTE: DRIP
     Route: 050
  2. DOPAMINE [Suspect]
     Active Substance: DOPAMINE\DOPAMINE HYDROCHLORIDE
     Indication: CARDIAC ARREST
     Dosage: ROUTE: DRIP
     Route: 050
  3. TRANEXAMIC ACID. [Suspect]
     Active Substance: TRANEXAMIC ACID
     Indication: PROCEDURAL HAEMORRHAGE
     Route: 065

REACTIONS (3)
  - Drug ineffective [Fatal]
  - Pulmonary embolism [Fatal]
  - Cardiac arrest [Fatal]
